FAERS Safety Report 22218214 (Version 1)
Quarter: 2023Q2

REPORT INFORMATION
  Report Type: Spontaneous
  Country: US (occurrence: US)
  Receive Date: 20230417
  Receipt Date: 20230417
  Transmission Date: 20230721
  Serious: Yes (Life-Threatening, Hospitalization, Other)
  Sender: FDA-Public Use
  Company Number: US-ROCHE-3023333

PATIENT
  Age: 52 Year
  Sex: Female
  Weight: 84.898 kg

DRUGS (29)
  1. CLONAZEPAM [Suspect]
     Active Substance: CLONAZEPAM
     Indication: Tremor
     Dosage: TWICE ONE DAY?DAILY DOSE: 1 MILLIGRAM
     Route: 048
     Dates: start: 2022
  2. CLONAZEPAM [Suspect]
     Active Substance: CLONAZEPAM
     Indication: Fatigue
     Dosage: TWICE ONE DAY?DAILY DOSE: 1 MILLIGRAM
     Route: 048
     Dates: start: 2022
  3. OCREVUS [Suspect]
     Active Substance: OCRELIZUMAB
     Indication: Primary progressive multiple sclerosis
     Route: 042
     Dates: start: 20201223
  4. OCREVUS [Suspect]
     Active Substance: OCRELIZUMAB
     Indication: Primary progressive multiple sclerosis
     Route: 042
     Dates: start: 20210108
  5. OCREVUS [Suspect]
     Active Substance: OCRELIZUMAB
     Indication: Primary progressive multiple sclerosis
     Route: 042
     Dates: start: 20210706
  6. OCREVUS [Suspect]
     Active Substance: OCRELIZUMAB
     Indication: Primary progressive multiple sclerosis
     Route: 042
     Dates: start: 20220106
  7. OCREVUS [Suspect]
     Active Substance: OCRELIZUMAB
     Indication: Primary progressive multiple sclerosis
     Dosage: RESCHEDULED FROM 12/JAN/2023
     Route: 042
     Dates: start: 20230220
  8. PREDNISONE [Suspect]
     Active Substance: PREDNISONE
     Indication: Optic neuritis
     Dosage: FOR WEEK 1, IN THE MORNING ?DAILY DOSE: 60 MILLIGRAM
     Route: 048
     Dates: start: 20220131
  9. PREDNISONE [Suspect]
     Active Substance: PREDNISONE
     Indication: Optic neuritis
     Dosage: FOR WEEK 2, IN THE MORNING ?DAILY DOSE: 40 MILLIGRAM
     Route: 048
  10. PREDNISONE [Suspect]
     Active Substance: PREDNISONE
     Indication: Optic neuritis
     Dosage: FOR WEEK 3, IN THE MORNING ?DAILY DOSE: 20 MILLIGRAM
     Route: 048
  11. AJOVY [Concomitant]
     Active Substance: FREMANEZUMAB-VFRM
     Indication: Migraine
     Dosage: INJECTABLE INTO LEG, DOSE-350
     Dates: start: 202108, end: 202109
  12. AJOVY [Concomitant]
     Active Substance: FREMANEZUMAB-VFRM
     Indication: Migraine
     Dates: start: 20220201
  13. SOLU-MEDROL [Concomitant]
     Active Substance: METHYLPREDNISOLONE SODIUM SUCCINATE
  14. BENADRYL [Concomitant]
     Active Substance: DIPHENHYDRAMINE HYDROCHLORIDE
     Indication: Drug hypersensitivity
  15. ZYRTEC [Concomitant]
     Active Substance: CETIRIZINE HYDROCHLORIDE
  16. ZANAFLEX [Concomitant]
     Active Substance: TIZANIDINE HYDROCHLORIDE
  17. PEPCID [Concomitant]
     Active Substance: FAMOTIDINE
  18. MELOXICAM [Concomitant]
     Active Substance: MELOXICAM
  19. ZOFRAN [Concomitant]
     Active Substance: ONDANSETRON HYDROCHLORIDE
  20. PHENERGAN [Concomitant]
     Active Substance: PROMETHAZINE HYDROCHLORIDE
  21. VITAMIN D3 [Concomitant]
     Active Substance: CHOLECALCIFEROL
  22. PROZOSIN [Concomitant]
  23. LEVBID [Concomitant]
     Active Substance: HYOSCYAMINE SULFATE
  24. SENNA PLUS [Concomitant]
     Active Substance: DOCUSATE SODIUM\SENNOSIDES\SENNOSIDES A AND B
  25. UNITHROID [Concomitant]
     Active Substance: LEVOTHYROXINE SODIUM
  26. REGLAN [Concomitant]
     Active Substance: METOCLOPRAMIDE HYDROCHLORIDE
  27. MODAFINIL [Concomitant]
     Active Substance: MODAFINIL
  28. ADVAIR HFA [Concomitant]
     Active Substance: FLUTICASONE PROPIONATE\SALMETEROL XINAFOATE
  29. PRISTIQ EXTENDED-RELEASE [Concomitant]
     Active Substance: DESVENLAFAXINE SUCCINATE
     Dates: start: 202301

REACTIONS (13)
  - Optic neuritis [Recovered/Resolved]
  - Optic neuritis [Recovered/Resolved]
  - Suicide attempt [Unknown]
  - Impaired gastric emptying [Recovering/Resolving]
  - Angle closure glaucoma [Not Recovered/Not Resolved]
  - Infusion related reaction [Not Recovered/Not Resolved]
  - Pityriasis rosea [Unknown]
  - Foot fracture [Recovered/Resolved]
  - Fall [Unknown]
  - Asthma [Not Recovered/Not Resolved]
  - Glucose tolerance impaired [Not Recovered/Not Resolved]
  - Blood cholesterol increased [Unknown]
  - Product use in unapproved indication [Unknown]

NARRATIVE: CASE EVENT DATE: 20220101
